FAERS Safety Report 5709195-0 (Version None)
Quarter: 2008Q2

REPORT INFORMATION
  Report Type: 
  Country: None (occurrence: None)
  Receive Date: 20080418
  Receipt Date: 20080408
  Transmission Date: 20081010
  Serious: Yes (Hospitalization)
  Sender: FDA-Public Use
  Company Number: CA-JNJFOC-20080402754

PATIENT
  Age: 60 Year
  Sex: Female

DRUGS (14)
  1. REMICADE [Suspect]
     Indication: RHEUMATOID ARTHRITIS
     Route: 042
  2. ACTONEL [Concomitant]
     Route: 048
  3. COZAAR [Concomitant]
  4. ADALAT [Concomitant]
     Route: 048
  5. ATASOL 30 [Concomitant]
     Route: 048
  6. IBUPROFEN [Concomitant]
     Route: 048
  7. REFRESH TEARS [Concomitant]
     Route: 047
  8. AMITRIPTYLINE HCL [Concomitant]
     Route: 048
  9. SLOW-K [Concomitant]
     Route: 048
  10. ASACOL [Concomitant]
     Route: 048
  11. DICETEL [Concomitant]
     Route: 048
  12. PREDNISONE [Concomitant]
     Route: 048
  13. XALATAN [Concomitant]
     Route: 047
  14. GABAPENTIN [Concomitant]
     Route: 048

REACTIONS (1)
  - COLITIS [None]
